FAERS Safety Report 16084513 (Version 1)
Quarter: 2019Q1

REPORT INFORMATION
  Report Type: Spontaneous
  Country: US (occurrence: US)
  Receive Date: 20190214
  Receipt Date: 20190214
  Transmission Date: 20190418
  Serious: Yes (Hospitalization)
  Sender: FDA-Public Use
  Company Number: None

PATIENT
  Age: 55 Year
  Sex: Male

DRUGS (29)
  1. INDOMETHACIN. [Concomitant]
     Active Substance: INDOMETHACIN
  2. DULOXETINE. [Concomitant]
     Active Substance: DULOXETINE
  3. VITAMIN D3 [Concomitant]
     Active Substance: CHOLECALCIFEROL
  4. METHYLPREDNISOLONE. [Concomitant]
     Active Substance: METHYLPREDNISOLONE
  5. LISINOPRIL. [Concomitant]
     Active Substance: LISINOPRIL
  6. DIAZEPAM. [Concomitant]
     Active Substance: DIAZEPAM
  7. BACLOFEN. [Concomitant]
     Active Substance: BACLOFEN
  8. WAL-DRAM [Concomitant]
     Active Substance: DIMENHYDRINATE
  9. SERTRALINE [Concomitant]
     Active Substance: SERTRALINE HYDROCHLORIDE
  10. GLATIRAMER 40MG [Suspect]
     Active Substance: GLATIRAMER
     Indication: MULTIPLE SCLEROSIS
     Route: 058
  11. NODOLOR [Concomitant]
     Active Substance: ACETAMINOPHEN\DICHLORALPHENAZONE\ISOMETHEPTENE MUCATE
  12. BENZONATATE. [Concomitant]
     Active Substance: BENZONATATE
  13. ZOFRAN [Concomitant]
     Active Substance: ONDANSETRON HYDROCHLORIDE
  14. NEURONTIN [Concomitant]
     Active Substance: GABAPENTIN
  15. HCTZ [Concomitant]
     Active Substance: HYDROCHLOROTHIAZIDE
  16. NUEDEXTA [Concomitant]
     Active Substance: DEXTROMETHORPHAN HYDROBROMIDE\QUINIDINE SULFATE
  17. MELOXICAM. [Concomitant]
     Active Substance: MELOXICAM
  18. TRAZODONE [Concomitant]
     Active Substance: TRAZODONE HYDROCHLORIDE
  19. CLONAZEPAM. [Concomitant]
     Active Substance: CLONAZEPAM
  20. ATOVASTATIN [Concomitant]
     Active Substance: ATORVASTATIN
  21. FLUTICASONE. [Concomitant]
     Active Substance: FLUTICASONE
  22. METFORMIN [Concomitant]
     Active Substance: METFORMIN HYDROCHLORIDE
  23. AMOXICILLIN. [Concomitant]
     Active Substance: AMOXICILLIN
  24. SERTRALINE [Concomitant]
     Active Substance: SERTRALINE HYDROCHLORIDE
  25. NORCO [Concomitant]
     Active Substance: ACETAMINOPHEN\HYDROCODONE BITARTRATE
  26. PREDNISONE. [Concomitant]
     Active Substance: PREDNISONE
  27. DOXYCYCLINE. [Concomitant]
     Active Substance: DOXYCYCLINE
  28. GABAPENTIN. [Concomitant]
     Active Substance: GABAPENTIN
  29. OMEPRAZOLE. [Concomitant]
     Active Substance: OMEPRAZOLE

REACTIONS (5)
  - Multiple sclerosis relapse [None]
  - Mobility decreased [None]
  - Visual impairment [None]
  - Fall [None]
  - Fatigue [None]

NARRATIVE: CASE EVENT DATE: 20190213
